FAERS Safety Report 7641069-0 (Version None)
Quarter: 2011Q3

REPORT INFORMATION
  Report Type: 
  Country: None (occurrence: None)
  Receive Date: 20110728
  Receipt Date: 20110720
  Transmission Date: 20111222
  Serious: Yes (Life-Threatening)
  Sender: FDA-Public Use
  Company Number: US-AMGEN-USASP2011035852

PATIENT
  Age: 60 Year
  Sex: Male

DRUGS (2)
  1. NPLATE [Suspect]
     Indication: IDIOPATHIC THROMBOCYTOPENIC PURPURA
     Dosage: 5 A?G/KG, UNK
     Dates: start: 20101128, end: 20110302
  2. CORTICOSTEROIDS [Concomitant]

REACTIONS (3)
  - MYALGIA [None]
  - THROMBOCYTOPENIA [None]
  - FATIGUE [None]
